FAERS Safety Report 6866655-7 (Version None)
Quarter: 2010Q3

REPORT INFORMATION
  Report Type: 
  Country: None (occurrence: None)
  Receive Date: 20100722
  Receipt Date: 20100714
  Transmission Date: 20110219
  Serious: Yes (Hospitalization)
  Sender: FDA-Public Use
  Company Number: US-SANOFI-AVENTIS-2010SA042184

PATIENT
  Age: 78 Year
  Sex: Male

DRUGS (3)
  1. PLAVIX [Suspect]
     Indication: STENT PLACEMENT
     Route: 048
     Dates: start: 20100101, end: 20100501
  2. PLAVIX [Suspect]
     Route: 048
     Dates: start: 20100501
  3. ASPIRIN [Suspect]
     Indication: STENT PLACEMENT
     Route: 065
     Dates: start: 20100101

REACTIONS (4)
  - ARTERIAL STENOSIS [None]
  - CARDIO-RESPIRATORY ARREST [None]
  - DRUG RESISTANCE [None]
  - PULMONARY OEDEMA [None]
